FAERS Safety Report 8338538-7 (Version None)
Quarter: 2012Q2

REPORT INFORMATION
  Report Type: 
  Country: None (occurrence: None)
  Receive Date: 20120504
  Receipt Date: 20120424
  Transmission Date: 20120825
  Serious: Yes (Disabling)
  Sender: FDA-Public Use
  Company Number: AU-BAXTER-2012BAX003925

PATIENT
  Sex: Male

DRUGS (11)
  1. RABEPRAZOLE SODIUM [Concomitant]
     Indication: DUODENAL ULCER
     Route: 048
     Dates: start: 20120321
  2. TEMAZEPAM [Concomitant]
     Route: 048
     Dates: start: 20120325
  3. MORPHINE [Concomitant]
     Indication: PAIN
     Route: 058
     Dates: start: 20120322
  4. TRAMADOL HCL [Concomitant]
     Indication: PAIN
     Route: 048
     Dates: start: 20120327
  5. OXYCONTIN XR [Concomitant]
     Indication: PAIN
     Route: 048
     Dates: start: 20120321
  6. GABAPENTIN [Concomitant]
     Indication: PAIN
     Route: 048
     Dates: start: 20120323
  7. ACETAMINOPHEN [Concomitant]
     Indication: PAIN
     Route: 048
     Dates: start: 20120327
  8. COLOXYL WITH SENNA [Concomitant]
     Indication: LAXATIVE SUPPORTIVE CARE
     Dosage: 1-2 TABS
     Route: 048
     Dates: start: 20120328
  9. KIOVIG [Suspect]
     Route: 042
  10. ENOXAPARIN SODIUM [Concomitant]
     Route: 058
     Dates: start: 20120321, end: 20120404
  11. OXYCONTIN XR [Concomitant]
     Route: 048
     Dates: start: 20120321

REACTIONS (4)
  - PARAESTHESIA ORAL [None]
  - MIGRAINE [None]
  - PARAESTHESIA [None]
  - PAIN [None]
